FAERS Safety Report 10831192 (Version 1)
Quarter: 2015Q1

REPORT INFORMATION
  Report Type: Report from Study
  Country: US (occurrence: US)
  Receive Date: 20150219
  Receipt Date: 20150219
  Transmission Date: 20150721
  Serious: Yes (Other)
  Sender: FDA-Public Use
  Company Number: US-ABBVIE-14P-163-1192290-00

PATIENT
  Age: 59 Year
  Sex: Male
  Weight: 83.99 kg

DRUGS (4)
  1. HUMIRA [Suspect]
     Active Substance: ADALIMUMAB
     Dates: start: 201306, end: 201310
  2. HUMIRA [Suspect]
     Active Substance: ADALIMUMAB
     Dates: start: 201310
  3. 6-MP [Concomitant]
     Active Substance: MERCAPTOPURINE
     Indication: PRODUCT USED FOR UNKNOWN INDICATION
     Dates: start: 2009
  4. HUMIRA [Suspect]
     Active Substance: ADALIMUMAB
     Indication: CROHN^S DISEASE
     Dates: start: 200904, end: 201002

REACTIONS (6)
  - Aesthesioneuroblastoma [Recovered/Resolved]
  - Drug ineffective [Recovering/Resolving]
  - Faecal incontinence [Recovering/Resolving]
  - Abdominal pain [Recovering/Resolving]
  - Crohn^s disease [Recovering/Resolving]
  - Crohn^s disease [Unknown]

NARRATIVE: CASE EVENT DATE: 200910
